FAERS Safety Report 21505269 (Version 1)
Quarter: 2022Q4

REPORT INFORMATION
  Report Type: Spontaneous
  Country: DE (occurrence: DE)
  Receive Date: 20221026
  Receipt Date: 20221026
  Transmission Date: 20230113
  Serious: No
  Sender: FDA-Public Use
  Company Number: DE-ALKEM LABORATORIES LIMITED-DE-ALKEM-2022-10795

PATIENT
  Sex: Female
  Weight: 111 kg

DRUGS (1)
  1. FINGOLIMOD [Suspect]
     Active Substance: FINGOLIMOD
     Indication: Foetal exposure during pregnancy
     Dosage: UNK, (CAPSULE, HARD)
     Route: 065
     Dates: start: 201303, end: 20201203

REACTIONS (1)
  - Exposure during pregnancy [Unknown]
